FAERS Safety Report 4277667-4 (Version None)
Quarter: 2004Q1

REPORT INFORMATION
  Report Type: 
  Country: None (occurrence: None)
  Receive Date: 20040121
  Receipt Date: 20040115
  Transmission Date: 20041129
  Serious: No
  Sender: FDA-Public Use
  Company Number: 2003169727US

PATIENT
  Age: 63 Year
  Sex: Male
  Weight: 99.8 kg

DRUGS (13)
  1. BEXTRA [Suspect]
     Indication: OSTEOARTHRITIS
     Dosage: 10 MG, DAILY TO TWICE DAILY, ORAL
     Route: 048
     Dates: start: 20030515, end: 20030522
  2. ATENOLOL [Concomitant]
  3. SYNTHROID [Concomitant]
  4. HUMALOG [Concomitant]
  5. ENALAPRIL MALEATE [Concomitant]
  6. DYAZIDE [Concomitant]
  7. IRON [Concomitant]
  8. VITAMIN B-12 [Concomitant]
  9. MULTIVITAMINS (PANTHENOL, RETINOL, ERGOCALCIFEROL) [Concomitant]
  10. VITAMIN E [Concomitant]
  11. GLUCOSAMINE W/CHONDROITIN SULFATES (MANGANESE) [Concomitant]
  12. COSOPT [Concomitant]
  13. ASPIRIN [Concomitant]

REACTIONS (6)
  - BLISTER [None]
  - CARDIAC DISORDER [None]
  - HEPATOCELLULAR DAMAGE [None]
  - RASH VESICULAR [None]
  - RENAL DISORDER [None]
  - SKIN GRAFT [None]
